FAERS Safety Report 8416049-8 (Version None)
Quarter: 2012Q2

REPORT INFORMATION
  Report Type: 
  Country: None (occurrence: None)
  Receive Date: 20120606
  Receipt Date: 20120531
  Transmission Date: 20120825
  Serious: Yes (Disabling, Other)
  Sender: FDA-Public Use
  Company Number: JP-ROCHE-1068172

PATIENT
  Sex: Male
  Weight: 55 kg

DRUGS (13)
  1. PREDNISOLONE [Suspect]
     Indication: INTERSTITIAL LUNG DISEASE
     Route: 048
     Dates: start: 20120207, end: 20120223
  2. AVASTIN [Suspect]
     Indication: RECTAL CANCER METASTATIC
     Route: 041
     Dates: start: 20110715, end: 20111201
  3. GLUFAST [Concomitant]
     Indication: DIABETES MELLITUS
     Route: 048
     Dates: start: 20080401
  4. METFORMIN HYDROCHLORIDE [Concomitant]
     Indication: DIABETES MELLITUS
     Route: 048
  5. XELODA [Suspect]
     Indication: RECTAL CANCER METASTATIC
     Dosage: THE SEVENTH ADMINISTERING/ ON THE 14TH
     Route: 048
     Dates: start: 20110715, end: 20120120
  6. PREDNISOLONE [Suspect]
     Route: 048
     Dates: start: 20120224, end: 20120307
  7. WARFARIN SODIUM [Concomitant]
     Indication: ATRIAL FIBRILLATION
     Route: 048
     Dates: start: 20050301
  8. LOSARTAN POTASSIUM [Concomitant]
     Indication: HYPERTENSION
     Route: 048
     Dates: end: 20120206
  9. METHYLPREDNISOLONE SODIUM SUCCINATE [Suspect]
     Indication: INTERSTITIAL LUNG DISEASE
     Route: 041
     Dates: start: 20120204, end: 20120206
  10. PREDNISOLONE [Suspect]
     Route: 048
     Dates: start: 20120308
  11. HALFDIGOXIN KY [Concomitant]
     Indication: ATRIAL FIBRILLATION
     Route: 048
     Dates: start: 20050301
  12. NIZATIDINE [Concomitant]
     Indication: GASTRITIS PROPHYLAXIS
     Route: 048
     Dates: end: 20120204
  13. OXALIPLATIN [Suspect]
     Indication: RECTAL CANCER METASTATIC
     Route: 041
     Dates: start: 20110715, end: 20120101

REACTIONS (3)
  - PNEUMOMEDIASTINUM [None]
  - SUBCUTANEOUS EMPHYSEMA [None]
  - INTERSTITIAL LUNG DISEASE [None]
